FAERS Safety Report 5910677-7 (Version None)
Quarter: 2008Q4

REPORT INFORMATION
  Report Type: 
  Country: None (occurrence: None)
  Receive Date: 20081007
  Receipt Date: 20080930
  Transmission Date: 20090506
  Serious: Yes (Other)
  Sender: FDA-Public Use
  Company Number: BE-ROCHE-583931

PATIENT
  Age: 82 Year
  Sex: Male

DRUGS (5)
  1. BONIVA [Suspect]
     Indication: OSTEOPOROSIS
     Route: 042
     Dates: start: 20080501, end: 20080801
  2. STATINS [Concomitant]
     Indication: HYPERCHOLESTEROLAEMIA
     Route: 048
     Dates: start: 20040101, end: 20080801
  3. OMEPRAZOLE [Concomitant]
     Route: 048
  4. PLAVIX [Concomitant]
     Indication: INTERMITTENT CLAUDICATION
     Route: 048
  5. TEVETEN 300 [Concomitant]
     Indication: HYPERTENSION
     Dosage: DRUG NAME REPORTED AS TEVETEN
     Route: 048

REACTIONS (1)
  - MYALGIA [None]
